FAERS Safety Report 17643384 (Version 1)
Quarter: 2020Q2

REPORT INFORMATION
  Report Type: Spontaneous
  Country: US (occurrence: US)
  Receive Date: 20200408
  Receipt Date: 20200408
  Transmission Date: 20200713
  Serious: Yes (Hospitalization)
  Sender: FDA-Public Use
  Company Number: None

PATIENT
  Age: 52 Year
  Sex: Female
  Weight: 67.7 kg

DRUGS (1)
  1. EMGALITY [Suspect]
     Active Substance: GALCANEZUMAB-GNLM
     Indication: MIGRAINE
     Dosage: ?          OTHER FREQUENCY:ONLY GIVEN ONCE;?
     Route: 058
     Dates: start: 20200204, end: 20200204

REACTIONS (3)
  - Vasculitis [None]
  - Gangrene [None]
  - Palpable purpura [None]

NARRATIVE: CASE EVENT DATE: 20200206
